FAERS Safety Report 9580235 (Version 1)
Quarter: 2013Q3

REPORT INFORMATION
  Report Type: Spontaneous
  Country: FR (occurrence: None)
  Receive Date: 20130930
  Receipt Date: 20130930
  Transmission Date: 20140515
  Serious: Yes (Other)
  Sender: FDA-Public Use
  Company Number: 2013P1019558

PATIENT
  Sex: 0

DRUGS (3)
  1. ESCITALOPRAM [Suspect]
  2. FUROSEMIDE [Suspect]
  3. BROMAZEPAM [Suspect]

REACTIONS (2)
  - Drug interaction [None]
  - Adverse drug reaction [None]
